FAERS Safety Report 7233280-8 (Version None)
Quarter: 2011Q1

REPORT INFORMATION
  Report Type: 
  Country: None (occurrence: None)
  Receive Date: 20110106
  Receipt Date: 20101220
  Transmission Date: 20110831
  Serious: No
  Sender: FDA-Public Use
  Company Number: 2010-01054

PATIENT
  Sex: Female
  Weight: 64.4108 kg

DRUGS (9)
  1. HYDROCODONE [Concomitant]
  2. EQUATE NIGHT-TIME SLEEP AID [Concomitant]
  3. STRESS B COMPLEX [Concomitant]
  4. VITAMINS C + D [Concomitant]
  5. GLUCOSAMINE/CHONDROITIN [Concomitant]
  6. PROBIOTIC [Concomitant]
  7. ZICAM COLD REMEDY NASAL GEL [Suspect]
  8. CLONAZEPAM [Concomitant]
  9. ESTRADIOL [Concomitant]

REACTIONS (1)
  - ANOSMIA [None]
